FAERS Safety Report 10334862 (Version 1)
Quarter: 2014Q3

REPORT INFORMATION
  Report Type: Spontaneous
  Country: US (occurrence: None)
  Receive Date: 20140722
  Receipt Date: 20140722
  Transmission Date: 20150326
  Serious: No
  Sender: FDA-Public Use
  Company Number: None

PATIENT
  Sex: Female
  Weight: 104.33 kg

DRUGS (8)
  1. SLEEP APNEA MACHINE [Concomitant]
  2. TRANSDERM SCOP [Suspect]
     Active Substance: SCOPOLAMINE
     Indication: MOTION SICKNESS
     Dosage: 4 PATCHES 1 X EVERY 3 DAYS BEHIND EAR
     Dates: start: 20140426, end: 20140501
  3. MIRALAX [Concomitant]
     Active Substance: POLYETHYLENE GLYCOL 3350
  4. MELATONIN [Concomitant]
     Active Substance: MELATONIN
  5. ZYRTEC [Concomitant]
     Active Substance: CETIRIZINE HYDROCHLORIDE
  6. AMITIZA [Concomitant]
     Active Substance: LUBIPROSTONE
  7. CABERGOLINE. [Concomitant]
     Active Substance: CABERGOLINE
  8. SIMVASTATIN. [Concomitant]
     Active Substance: SIMVASTATIN

REACTIONS (4)
  - Swelling [None]
  - Joint swelling [None]
  - Lymphorrhoea [None]
  - Rash [None]

NARRATIVE: CASE EVENT DATE: 20130525
